APPROVED DRUG PRODUCT: CEFTAZIDIME
Active Ingredient: CEFTAZIDIME
Strength: 2GM/VIAL
Dosage Form/Route: INJECTABLE;INJECTION
Application: A062640 | Product #003 | TE Code: AP
Applicant: ACS DOBFAR SPA
Approved: Nov 20, 1985 | RLD: No | RS: Yes | Type: RX